FAERS Safety Report 20119572 (Version 1)
Quarter: 2021Q4

REPORT INFORMATION
  Report Type: Spontaneous
  Country: US (occurrence: US)
  Receive Date: 20211126
  Receipt Date: 20211126
  Transmission Date: 20220303
  Serious: Yes (Other)
  Sender: FDA-Public Use
  Company Number: US-NOVARTISPH-NVSC2021US265910

PATIENT
  Sex: Male

DRUGS (6)
  1. PREDNISONE [Suspect]
     Active Substance: PREDNISONE
     Indication: Hormone-refractory prostate cancer
     Dosage: UNK
     Route: 065
  2. ENZALUTAMIDE [Suspect]
     Active Substance: ENZALUTAMIDE
     Indication: Hormone-refractory prostate cancer
     Dosage: UNK
     Route: 065
  3. DAROLUTAMIDE [Suspect]
     Active Substance: DAROLUTAMIDE
     Indication: Hormone-refractory prostate cancer
     Dosage: UNK
     Route: 065
  4. ABIRATERONE [Suspect]
     Active Substance: ABIRATERONE
     Indication: Hormone-refractory prostate cancer
     Dosage: UNK
     Route: 065
  5. AMITRIPTYLINE HYDROCHLORIDE [Suspect]
     Active Substance: AMITRIPTYLINE HYDROCHLORIDE
     Indication: Hormone-refractory prostate cancer
     Route: 065
  6. TESTOSTERONE CYPIONATE [Concomitant]
     Active Substance: TESTOSTERONE CYPIONATE
     Indication: Product used for unknown indication
     Dosage: UNK
     Route: 065
     Dates: start: 20210902

REACTIONS (3)
  - Hormone-refractory prostate cancer [Unknown]
  - Malignant neoplasm progression [Unknown]
  - Product use in unapproved indication [Unknown]
